FAERS Safety Report 11599811 (Version 1)
Quarter: 2015Q3

REPORT INFORMATION
  Report Type: Spontaneous
  Country: US (occurrence: US)
  Receive Date: 20150916
  Receipt Date: 20150916
  Transmission Date: 20151125
  Serious: No
  Sender: FDA-Public Use
  Company Number: US-ELI_LILLY_AND_COMPANY-US200601000901

PATIENT
  Sex: Female
  Weight: 62.59 kg

DRUGS (2)
  1. ASPIRIN ^BAYER^ [Concomitant]
     Active Substance: ASPIRIN
     Indication: PAIN
  2. FORTEO [Suspect]
     Active Substance: TERIPARATIDE
     Indication: OSTEOPOROSIS
     Dosage: UNK, UNK
     Dates: start: 200504

REACTIONS (4)
  - Injection site bruising [Not Recovered/Not Resolved]
  - Feeling abnormal [Unknown]
  - Osteopenia [Not Recovered/Not Resolved]
  - Cough [Unknown]
